FAERS Safety Report 16410819 (Version 1)
Quarter: 2019Q2

REPORT INFORMATION
  Report Type: Spontaneous
  Country: SI (occurrence: SI)
  Receive Date: 20190610
  Receipt Date: 20190610
  Transmission Date: 20190711
  Serious: Yes (Life-Threatening, Hospitalization)
  Sender: FDA-Public Use
  Company Number: SI-BAYER-2019-109782

PATIENT
  Age: 23 Year
  Sex: Female

DRUGS (1)
  1. JAYDESS [Suspect]
     Active Substance: LEVONORGESTREL
     Indication: CONTRACEPTION
     Dosage: 14 MCG/24HR, CONT
     Route: 015

REACTIONS (5)
  - Menstruation irregular [Unknown]
  - Intra-abdominal haemorrhage [Recovered/Resolved with Sequelae]
  - Ectopic pregnancy with contraceptive device [Recovered/Resolved with Sequelae]
  - Acute abdomen [Recovered/Resolved with Sequelae]
  - Salpingectomy [Recovered/Resolved with Sequelae]

NARRATIVE: CASE EVENT DATE: 2017
